FAERS Safety Report 22283688 (Version 1)
Quarter: 2023Q2

REPORT INFORMATION
  Report Type: Spontaneous
  Country: CA (occurrence: CA)
  Receive Date: 20230504
  Receipt Date: 20230504
  Transmission Date: 20230722
  Serious: Yes (Other)
  Sender: FDA-Public Use
  Company Number: CA-002147023-NVSC2023CA097210

PATIENT
  Age: 56 Year
  Sex: Female

DRUGS (1)
  1. TAMSULOSIN [Suspect]
     Active Substance: TAMSULOSIN
     Indication: Nephrolithiasis
     Dosage: 0.4 MG, QD (EXTENDED RELEASE TABLET)
     Route: 048

REACTIONS (13)
  - Anxiety [Recovered/Resolved]
  - Arrhythmia [Recovered/Resolved]
  - Cognitive disorder [Recovered/Resolved]
  - Communication disorder [Recovered/Resolved]
  - Dissociation [Recovered/Resolved]
  - Headache [Recovered/Resolved]
  - Heart rate increased [Recovered/Resolved]
  - Illusion [Recovered/Resolved]
  - Lip swelling [Recovered/Resolved]
  - Mobility decreased [Recovered/Resolved]
  - Oxygen saturation decreased [Recovered/Resolved]
  - Periorbital swelling [Recovered/Resolved]
  - Speech disorder [Recovered/Resolved]
